FAERS Safety Report 21805729 (Version 1)
Quarter: 2023Q1

REPORT INFORMATION
  Report Type: Spontaneous
  Country: US (occurrence: US)
  Receive Date: 20230102
  Receipt Date: 20230102
  Transmission Date: 20230418
  Serious: No
  Sender: FDA-Public Use
  Company Number: US-drreddys-SPO/USA/22/0159090

PATIENT
  Age: 72 Year
  Sex: Female

DRUGS (8)
  1. LENALIDOMIDE [Suspect]
     Active Substance: LENALIDOMIDE
     Indication: Diffuse large B-cell lymphoma
     Dosage: TAKE 1 CAPSULE BY MOUTH EVERY DAY ON DAYS 1-21 THEN OFF FOR 7 DAYS
     Route: 048
     Dates: start: 20221110
  2. CETIRIZINE [Concomitant]
     Active Substance: CETIRIZINE HYDROCHLORIDE
     Indication: Product used for unknown indication
  3. CYCLOBENZAPR TAB 5MG [Concomitant]
     Indication: Product used for unknown indication
  4. DOCUSATE SOD CAP 250MG [Concomitant]
     Indication: Product used for unknown indication
  5. MONJUVI SOL 200MG [Concomitant]
     Indication: Product used for unknown indication
  6. MUCINEX TB1 600MG [Concomitant]
     Indication: Product used for unknown indication
  7. POTASSIUM CH TBC 20MEQ [Concomitant]
     Indication: Product used for unknown indication
  8. SENNA TAB 8.6MG [Concomitant]
     Indication: Product used for unknown indication

REACTIONS (1)
  - Blood potassium decreased [Unknown]
